FAERS Safety Report 10078805 (Version 1)
Quarter: 2014Q2

REPORT INFORMATION
  Report Type: Spontaneous
  Country: US (occurrence: None)
  Receive Date: 20140414
  Receipt Date: 20140414
  Transmission Date: 20141212
  Serious: No
  Sender: FDA-Public Use
  Company Number: None

PATIENT
  Age: 80 Year
  Sex: Male
  Weight: 73.5 kg

DRUGS (2)
  1. BENDAMUSTINE HYDROCHLORIDE [Suspect]
  2. RITUXIMAB [Suspect]

REACTIONS (2)
  - Infusion related reaction [None]
  - Blood uric acid increased [None]
